FAERS Safety Report 6941472-8 (Version None)
Quarter: 2010Q3

REPORT INFORMATION
  Report Type: 
  Country: None (occurrence: None)
  Receive Date: 20100825
  Receipt Date: 20100824
  Transmission Date: 20110219
  Serious: Yes (Life-Threatening, Other)
  Sender: FDA-Public Use
  Company Number: KR-ROXANE LABORATORIES, INC.-2010-RO-01131RO

PATIENT
  Age: 32 Year
  Sex: Male
  Weight: 94 kg

DRUGS (7)
  1. MIDAZOLAM HCL [Suspect]
     Indication: CONVULSION
     Route: 042
  2. MIDAZOLAM HCL [Suspect]
     Route: 042
  3. BUPROPION [Suspect]
     Indication: ATTENTION DEFICIT/HYPERACTIVITY DISORDER
  4. VALIUM [Suspect]
     Indication: PROPHYLAXIS
  5. VALIUM [Suspect]
     Indication: CONVULSION
  6. LABETALOL HCL [Suspect]
     Indication: HEART RATE INCREASED
  7. LABETALOL HCL [Suspect]
     Indication: HYPERTENSION

REACTIONS (2)
  - BLOOD CREATINE PHOSPHOKINASE INCREASED [None]
  - RESPIRATORY FATIGUE [None]
